FAERS Safety Report 9342934 (Version 1)
Quarter: 2013Q2

REPORT INFORMATION
  Report Type: Spontaneous
  Country: US (occurrence: US)
  Receive Date: 20130611
  Receipt Date: 20130611
  Transmission Date: 20140414
  Serious: Yes (Other)
  Sender: FDA-Public Use
  Company Number: US-MERCK-1306USA003636

PATIENT
  Age: 29 Year
  Sex: Male

DRUGS (3)
  1. SAPHRIS [Suspect]
     Indication: AFFECTIVE DISORDER
     Dosage: 10 MG, UNK
     Route: 060
     Dates: start: 2012
  2. SAPHRIS [Suspect]
     Dosage: 5 MG, UNK
     Route: 060
  3. COGENTIN [Concomitant]

REACTIONS (2)
  - Aphasia [Recovering/Resolving]
  - Oesophageal motility disorder [Unknown]
